FAERS Safety Report 19750943 (Version 1)
Quarter: 2021Q3

REPORT INFORMATION
  Report Type: Spontaneous
  Country: SE (occurrence: SE)
  Receive Date: 20210826
  Receipt Date: 20210826
  Transmission Date: 20211014
  Serious: Yes (Hospitalization, Other)
  Sender: FDA-Public Use
  Company Number: SE-PFIZER INC-202101051954

PATIENT
  Age: 61 Year
  Sex: Female

DRUGS (2)
  1. TARGINIQ ER [Suspect]
     Active Substance: NALOXONE HYDROCHLORIDE\OXYCODONE HYDROCHLORIDE
     Dosage: 100?150 PIECES, 10 MG
     Dates: start: 20210725, end: 20210725
  2. XANOR [Suspect]
     Active Substance: ALPRAZOLAM
     Dosage: 100 PIECES
     Dates: start: 20210725, end: 20210725

REACTIONS (3)
  - Suicidal ideation [Unknown]
  - Acute kidney injury [Unknown]
  - Toxicity to various agents [Unknown]

NARRATIVE: CASE EVENT DATE: 20210725
